FAERS Safety Report 8314324-9 (Version None)
Quarter: 2012Q2

REPORT INFORMATION
  Report Type: 
  Country: None (occurrence: None)
  Receive Date: 20120426
  Receipt Date: 20120424
  Transmission Date: 20120825
  Serious: Yes (Hospitalization)
  Sender: FDA-Public Use
  Company Number: FR-ROCHE-1045107

PATIENT
  Sex: Female

DRUGS (18)
  1. VALGANCICLOVIR [Suspect]
     Dates: start: 20120206
  2. MYCOPHENOLATE MOFETIL (CELLCEPT) [Suspect]
     Indication: PROPHYLAXIS AGAINST TRANSPLANT REJECTION
     Route: 048
     Dates: start: 20111216
  3. ATHYMIL [Suspect]
     Indication: DEPRESSION
     Route: 048
     Dates: start: 20120131, end: 20120202
  4. NEORAL [Concomitant]
  5. PREDNISONE TAB [Concomitant]
  6. BACTRIM DS [Concomitant]
  7. NEXIUM [Concomitant]
  8. MYCOPHENOLATE MOFETIL (CELLCEPT) [Suspect]
     Dosage: DOSE DECREASED
     Route: 048
     Dates: start: 20120125
  9. DUPHALAC [Concomitant]
  10. NEORAL [Concomitant]
     Dosage: DOSE INCREASED.
  11. BISOPROLOL FUMARATE [Concomitant]
  12. VALGANCICLOVIR [Suspect]
     Indication: CYTOMEGALOVIRUS INFECTION
     Route: 048
     Dates: start: 20120123, end: 20120203
  13. FLUCONAZOLE [Suspect]
     Indication: OESOPHAGEAL CANDIDIASIS
     Route: 048
     Dates: start: 20120126, end: 20120203
  14. ASPIRIN [Concomitant]
  15. ACETAMINOPHEN [Concomitant]
  16. CEFTAZIDIME [Concomitant]
  17. ATORVASTATIN [Concomitant]
  18. NEORAL [Concomitant]
     Dosage: DOSE DECREASED.
     Dates: start: 20120126

REACTIONS (1)
  - AGRANULOCYTOSIS [None]
